FAERS Safety Report 16759844 (Version 1)
Quarter: 2019Q3

REPORT INFORMATION
  Report Type: Spontaneous
  Country: US (occurrence: US)
  Receive Date: 20190830
  Receipt Date: 20190830
  Transmission Date: 20191005
  Serious: No
  Sender: FDA-Public Use
  Company Number: US-BIOGEN-2019BI00779747

PATIENT
  Sex: Female

DRUGS (1)
  1. TYSABRI [Suspect]
     Active Substance: NATALIZUMAB
     Indication: MULTIPLE SCLEROSIS
     Route: 042
     Dates: start: 20190322

REACTIONS (7)
  - Eosinophil count abnormal [Not Recovered/Not Resolved]
  - Decreased immune responsiveness [Unknown]
  - Candida infection [Not Recovered/Not Resolved]
  - Asthma [Unknown]
  - Hypersensitivity [Unknown]
  - Pneumonia [Recovered/Resolved]
  - White blood cell count increased [Unknown]
